FAERS Safety Report 25864405 (Version 6)
Quarter: 2025Q4

REPORT INFORMATION
  Report Type: Report from Study
  Country: US (occurrence: None)
  Receive Date: 20250930
  Receipt Date: 20251230
  Transmission Date: 20260117
  Serious: Yes (Hospitalization, Other)
  Sender: UCB
  Company Number: US-UCBSA-2025011391

PATIENT
  Age: 9 Year
  Weight: 31.3 kg

DRUGS (16)
  1. FENFLURAMINE [Suspect]
     Active Substance: FENFLURAMINE
     Indication: Lennox-Gastaut syndrome
     Dosage: 2.5 MILLILITER, 2X/DAY (BID)
  2. FENFLURAMINE [Suspect]
     Active Substance: FENFLURAMINE
     Dosage: 4 MILLILITER, 2X/DAY (BID)
  3. FENFLURAMINE [Suspect]
     Active Substance: FENFLURAMINE
     Dosage: 5.5 MILLIGRAM, 2X/DAY (BID)
     Route: 061
  4. FENFLURAMINE [Suspect]
     Active Substance: FENFLURAMINE
     Dosage: 4 MILLILITER, 2X/DAY (BID)
  5. FENFLURAMINE [Suspect]
     Active Substance: FENFLURAMINE
     Dosage: 5 MILLILITER, 2X/DAY (BID)
  6. FENFLURAMINE [Suspect]
     Active Substance: FENFLURAMINE
     Dosage: 5 MILLILITER, 2X/DAY (BID)
  7. FENFLURAMINE [Suspect]
     Active Substance: FENFLURAMINE
     Dosage: 5 MILLILITER, 2X/DAY (BID)
  8. FENFLURAMINE [Suspect]
     Active Substance: FENFLURAMINE
     Dosage: 5 MILLILITER, 2X/DAY (BID)
  9. CLOBAZAM [Concomitant]
     Active Substance: CLOBAZAM
     Indication: Product used for unknown indication
     Dosage: UNK
  10. XCOPRI [Concomitant]
     Active Substance: CENOBAMATE
     Indication: Product used for unknown indication
     Dosage: 25 MILLIGRAM
  11. LORATADINE [Concomitant]
     Active Substance: LORATADINE
     Indication: Hypersensitivity
     Dosage: 10 ML PO DAILY
     Route: 061
  12. LORATADINE [Concomitant]
     Active Substance: LORATADINE
     Dosage: 10 ML PO DAILY
     Route: 061
  13. MONTELUKAST SODIUM [Concomitant]
     Active Substance: MONTELUKAST SODIUM
     Indication: Product used for unknown indication
     Dosage: UNK
  14. MONTELUKAST SODIUM [Concomitant]
     Active Substance: MONTELUKAST SODIUM
     Dosage: UNK
  15. EPIDIOLEX [Concomitant]
     Active Substance: CANNABIDIOL
     Indication: Product used for unknown indication
     Dosage: UNK
  16. KEPPRA [Concomitant]
     Active Substance: LEVETIRACETAM
     Indication: Product used for unknown indication
     Dosage: UNK

REACTIONS (13)
  - Vagal nerve stimulator implantation [Not Recovered/Not Resolved]
  - Seizure [Recovering/Resolving]
  - Asthma [Not Recovered/Not Resolved]
  - Pneumonia [Unknown]
  - Hypersensitivity [Not Recovered/Not Resolved]
  - Viral infection [Unknown]
  - Dysphagia [Unknown]
  - Dust allergy [Unknown]
  - Precocious puberty [Unknown]
  - Hypersomnia [Not Recovered/Not Resolved]
  - Decreased appetite [Recovering/Resolving]
  - Sleep disorder [Not Recovered/Not Resolved]
  - Drug ineffective [Unknown]
